FAERS Safety Report 4338030-0 (Version None)
Quarter: 2004Q2

REPORT INFORMATION
  Report Type: 
  Country: None (occurrence: None)
  Receive Date: 20040407
  Receipt Date: 20040330
  Transmission Date: 20050107
  Serious: Yes (Other)
  Sender: FDA-Public Use
  Company Number: 2004206093FR

PATIENT
  Sex: Male

DRUGS (10)
  1. ALDACTAZIDE [Suspect]
     Indication: BLOOD PRESSURE FLUCTUATION
     Dosage: 0.5 DF, QD, ORAL
     Route: 048
  2. DAFLON (DIOSMIN) [Concomitant]
  3. ESBERIVEN (MELILOT) [Concomitant]
  4. PROSCAR [Concomitant]
  5. INIPOMP [Concomitant]
  6. XALATAN [Concomitant]
  7. ART 50 (DIACEREIN) [Concomitant]
  8. PIASCLEDINE [Concomitant]
  9. DIFRAREL [Concomitant]
  10. CONDROSULF (CHONDROITIN SULFATE SODIUM) [Concomitant]

REACTIONS (6)
  - ARRHYTHMIA [None]
  - EXTRASYSTOLES [None]
  - HEART RATE INCREASED [None]
  - MUSCLE CRAMP [None]
  - PALPITATIONS [None]
  - SHOCK [None]
